FAERS Safety Report 8190344-2 (Version None)
Quarter: 2012Q1

REPORT INFORMATION
  Report Type: 
  Country: None (occurrence: None)
  Receive Date: 20120307
  Receipt Date: 20120301
  Transmission Date: 20120608
  Serious: Yes (Hospitalization, Other)
  Sender: FDA-Public Use
  Company Number: US-CELGENEUS-163-21880-11122073

PATIENT
  Sex: Female
  Weight: 99.88 kg

DRUGS (9)
  1. FENTANYL [Concomitant]
     Route: 062
  2. CIPRO [Concomitant]
     Route: 065
  3. DEXAMETHASONE [Concomitant]
     Route: 065
  4. REVLIMID [Suspect]
     Dosage: 25 MILLIGRAM
     Route: 048
     Dates: start: 20120101
  5. GABAPENTIN [Concomitant]
     Route: 065
  6. LEVOTHYROXINE SODIUM [Concomitant]
     Route: 065
  7. REVLIMID [Suspect]
     Indication: MULTIPLE MYELOMA
     Dosage: 25 MILLIGRAM
     Route: 048
     Dates: start: 20111121, end: 20111231
  8. ASPIRIN [Concomitant]
     Route: 065
     Dates: end: 20111201
  9. HYDROCODONE/ADAP [Concomitant]
     Route: 065

REACTIONS (5)
  - BACK DISORDER [None]
  - FATIGUE [None]
  - NAUSEA [None]
  - DEEP VEIN THROMBOSIS [None]
  - PULMONARY EMBOLISM [None]
